FAERS Safety Report 7405720-2 (Version None)
Quarter: 2011Q2

REPORT INFORMATION
  Report Type: 
  Country: None (occurrence: None)
  Receive Date: 20110411
  Receipt Date: 20110329
  Transmission Date: 20111010
  Serious: Yes (Hospitalization)
  Sender: FDA-Public Use
  Company Number: FR-ROCHE-768660

PATIENT
  Sex: Male
  Weight: 81 kg

DRUGS (13)
  1. RIVOTRIL [Concomitant]
     Route: 048
     Dates: start: 20110318
  2. LASIX [Concomitant]
     Route: 048
     Dates: start: 20110317
  3. NOVORAPID [Concomitant]
     Route: 058
     Dates: start: 20110319, end: 20110322
  4. MYCOPHENOLATE MOFETIL [Suspect]
     Dosage: FREQUENCY: DAILY
     Route: 048
     Dates: start: 20110317
  5. CYCLOSPORINE [Suspect]
     Dosage: FREQUENCY: DAILY
     Route: 048
     Dates: start: 20110318
  6. PREDNISONE [Suspect]
     Dosage: FREQUENCY: DAILY.
     Route: 048
     Dates: start: 20110318
  7. PARACETAMOL [Concomitant]
     Dosage: TDD: 1.9 X 4
     Route: 048
     Dates: start: 20110319, end: 20110323
  8. DITROPAN [Concomitant]
     Route: 048
     Dates: start: 20110320, end: 20110323
  9. BECILAN [Concomitant]
     Route: 048
     Dates: start: 20110321, end: 20110323
  10. NEXIUM [Concomitant]
     Route: 048
     Dates: start: 20110317
  11. ACUPAN [Concomitant]
     Route: 042
     Dates: start: 20110318, end: 20110323
  12. HALDOL [Concomitant]
     Dates: start: 20110321, end: 20110323
  13. BENERVA [Concomitant]
     Route: 048
     Dates: start: 20110321, end: 20110323

REACTIONS (1)
  - PULMONARY EMBOLISM [None]
